FAERS Safety Report 10436960 (Version 1)
Quarter: 2014Q3

REPORT INFORMATION
  Report Type: Spontaneous
  Country: US (occurrence: US)
  Receive Date: 20140908
  Receipt Date: 20140908
  Transmission Date: 20150326
  Serious: No
  Sender: FDA-Public Use
  Company Number: US-BRISTOL-MYERS SQUIBB COMPANY-20806204

PATIENT
  Age: 18 Year
  Sex: Female

DRUGS (2)
  1. ABILIFY [Suspect]
     Active Substance: ARIPIPRAZOLE
     Indication: PSYCHOTIC DISORDER
     Dosage: 2.5MG,5MG,10MG?20MAY14-15MG
  2. HALDOL [Concomitant]
     Active Substance: HALOPERIDOL

REACTIONS (3)
  - Wrong technique in drug usage process [Unknown]
  - Weight decreased [Unknown]
  - Soliloquy [Unknown]
